FAERS Safety Report 8229650-1 (Version None)
Quarter: 2012Q1

REPORT INFORMATION
  Report Type: 
  Country: None (occurrence: None)
  Receive Date: 20120322
  Receipt Date: 20120315
  Transmission Date: 20120608
  Serious: Yes (Hospitalization)
  Sender: FDA-Public Use
  Company Number: PHHO2012DE004412

PATIENT
  Sex: Male
  Weight: 89 kg

DRUGS (11)
  1. ZOMETA [Suspect]
     Indication: METASTASES TO BONE
     Dosage: 4 MG EVERY 4 WEEKS
     Route: 042
     Dates: start: 20100401
  2. DOCETAXEL [Suspect]
     Indication: PROSTATE CANCER
     Dosage: 150 MG,ONCE IN 3 WEEKS
     Route: 042
     Dates: start: 20110323
  3. ELIGARD [Concomitant]
     Indication: PROSTATE CANCER
     Dosage: 22.5 MG,EVERY 3 MONTHS
     Route: 048
  4. DICLOFENAC SODIUM [Concomitant]
     Indication: PAIN
     Dosage: 1 DF,4 TIMES A DAY
     Dates: start: 20111010
  5. BLOOD AND RELATED PRODUCTS [Concomitant]
     Indication: ANAEMIA
     Dosage: 2 TRANSFUSIONS
     Route: 042
     Dates: start: 20111021, end: 20111021
  6. PHYSIOTENS [Concomitant]
     Indication: HYPERTENSION
     Dosage: 0.3 MG, QD
     Route: 048
  7. RAMIPRIL [Concomitant]
     Indication: HYPERTENSION
     Dosage: 5 MG, QD
     Route: 048
     Dates: start: 20090601
  8. SELEN [Concomitant]
     Dosage: 1 DF, QD
     Route: 048
     Dates: start: 20000101
  9. PREDNISONE TAB [Suspect]
     Indication: PROSTATE CANCER
     Dosage: 10 MG, QD
     Route: 048
     Dates: start: 20110223
  10. NOVALGIN [Concomitant]
     Indication: PAIN
     Dosage: 30 GTT PRN
     Route: 048
     Dates: start: 20111010
  11. LENALIDOMIDE [Suspect]
     Indication: PROSTATE CANCER
     Dosage: 25 MG, QD
     Route: 048
     Dates: start: 20110323

REACTIONS (1)
  - ABSCESS JAW [None]
